FAERS Safety Report 7659657-4 (Version None)
Quarter: 2011Q3

REPORT INFORMATION
  Report Type: 
  Country: None (occurrence: None)
  Receive Date: 20110805
  Receipt Date: 20110728
  Transmission Date: 20111222
  Serious: Yes (Death, Other)
  Sender: FDA-Public Use
  Company Number: US-BAYER-201041856NA

PATIENT
  Age: 77 Year
  Sex: Male
  Weight: 96 kg

DRUGS (18)
  1. ZAROXOLYN [Concomitant]
     Dosage: 10 MG, BID NASOGASTRIC
  2. TRASYLOL [Suspect]
     Indication: CORONARY ARTERY BYPASS
     Dosage: TEST DOSE - 1ML
     Route: 042
     Dates: start: 20041004, end: 20041004
  3. RED BLOOD CELLS [Concomitant]
     Dosage: UNK
     Dates: start: 20041004
  4. INSULIN [Concomitant]
     Dosage: UNK
     Route: 042
     Dates: start: 20041004, end: 20041004
  5. TRASYLOL [Suspect]
     Dosage: LOADING DOSE 200ML THEN 50ML PER HOUR
  6. LIPITOR [Concomitant]
     Dosage: 40 MG, QD
  7. LISINOPRIL [Concomitant]
     Dosage: 20 MG, QD
  8. FUROSEMIDE [Concomitant]
     Dosage: 20 MG, QD
  9. NAPROXEN (ALEVE) [Concomitant]
  10. RED BLOOD CELLS [Concomitant]
     Dosage: UNK
  11. PLASMA [Concomitant]
     Dosage: UNK
     Dates: start: 20041004
  12. PLATELETS [Concomitant]
     Dosage: UNK
     Dates: start: 20041004
  13. FUROSEMIDE [Concomitant]
     Dosage: 120 MG, UNK
     Route: 042
     Dates: start: 20041013
  14. TRASYLOL [Suspect]
     Indication: AORTIC VALVE REPLACEMENT
     Dosage: 100ML PUMP PRIME
  15. PRIMACOR [Concomitant]
     Dosage: UNK
     Route: 042
     Dates: start: 20041004, end: 20041004
  16. EXTRA STRENGTH TYLENOL [Concomitant]
  17. HEPARIN [Concomitant]
     Dosage: UNK
     Route: 042
     Dates: start: 20041004, end: 20041004
  18. AMIODARONE HCL [Concomitant]
     Dosage: UNK
     Route: 042
     Dates: start: 20041004, end: 20041004

REACTIONS (11)
  - RENAL FAILURE [None]
  - ANXIETY [None]
  - RENAL INJURY [None]
  - STRESS [None]
  - EMOTIONAL DISTRESS [None]
  - UNEVALUABLE EVENT [None]
  - MULTI-ORGAN FAILURE [None]
  - FEAR [None]
  - PAIN [None]
  - DEATH [None]
  - RENAL IMPAIRMENT [None]
